FAERS Safety Report 8130852-3 (Version None)
Quarter: 2012Q1

REPORT INFORMATION
  Report Type: 
  Country: None (occurrence: None)
  Receive Date: 20120213
  Receipt Date: 20120209
  Transmission Date: 20120608
  Serious: No
  Sender: FDA-Public Use
  Company Number: US-PFIZER INC-2012037223

PATIENT
  Sex: Female
  Weight: 73.469 kg

DRUGS (5)
  1. ATENOLOL [Concomitant]
     Indication: CARDIAC DISORDER
     Dosage: 25 MG,  DAILY
  2. SYMBICORT [Concomitant]
     Indication: CHRONIC OBSTRUCTIVE PULMONARY DISEASE
     Dosage: 160/4.5 MG, 2X/DAY
  3. CHANTIX [Suspect]
     Indication: SMOKING CESSATION THERAPY
     Dosage: 0.5 MG, DAILY
     Dates: start: 20120202, end: 20120201
  4. ALBUTEROL [Concomitant]
     Indication: CHRONIC OBSTRUCTIVE PULMONARY DISEASE
     Dosage: UNK
  5. CHANTIX [Suspect]
     Dosage: UNK
     Dates: start: 20120201

REACTIONS (1)
  - DYSGEUSIA [None]
